FAERS Safety Report 11919226 (Version 4)
Quarter: 2017Q3

REPORT INFORMATION
  Report Type: Spontaneous
  Country: US (occurrence: US)
  Receive Date: 20160115
  Receipt Date: 20170707
  Transmission Date: 20171127
  Serious: Yes (Other)
  Sender: FDA-Public Use
  Company Number: US-JNJFOC-20151219943

PATIENT
  Age: 61 Year
  Sex: Male

DRUGS (9)
  1. XARELTO [Suspect]
     Active Substance: RIVAROXABAN
     Indication: THROMBOSIS PROPHYLAXIS
     Route: 048
     Dates: start: 20130531, end: 20130626
  2. XARELTO [Suspect]
     Active Substance: RIVAROXABAN
     Indication: THROMBOSIS PROPHYLAXIS
     Route: 048
     Dates: start: 2013, end: 201308
  3. XARELTO [Suspect]
     Active Substance: RIVAROXABAN
     Indication: THROMBOSIS PROPHYLAXIS
     Route: 048
     Dates: start: 20140815, end: 20140914
  4. XARELTO [Suspect]
     Active Substance: RIVAROXABAN
     Indication: THROMBOSIS PROPHYLAXIS
     Route: 048
     Dates: start: 20140815, end: 20140914
  5. XARELTO [Suspect]
     Active Substance: RIVAROXABAN
     Indication: PROTHROMBIN TIME ABNORMAL
     Route: 048
     Dates: start: 20130531, end: 20130626
  6. XARELTO [Suspect]
     Active Substance: RIVAROXABAN
     Indication: PROTHROMBIN TIME ABNORMAL
     Route: 048
     Dates: start: 2013, end: 201308
  7. XARELTO [Suspect]
     Active Substance: RIVAROXABAN
     Indication: THROMBOSIS PROPHYLAXIS
     Route: 048
     Dates: start: 20130531, end: 20130626
  8. XARELTO [Suspect]
     Active Substance: RIVAROXABAN
     Indication: THROMBOSIS PROPHYLAXIS
     Route: 048
     Dates: start: 2013, end: 201308
  9. XARELTO [Suspect]
     Active Substance: RIVAROXABAN
     Indication: PROTHROMBIN TIME ABNORMAL
     Route: 048
     Dates: start: 20140815, end: 20140914

REACTIONS (3)
  - Epistaxis [Unknown]
  - Internal haemorrhage [Recovered/Resolved]
  - Gastrointestinal haemorrhage [Unknown]

NARRATIVE: CASE EVENT DATE: 201306
